FAERS Safety Report 6128237-4 (Version None)
Quarter: 2009Q1

REPORT INFORMATION
  Report Type: 
  Country: None (occurrence: None)
  Receive Date: 20090319
  Receipt Date: 20090304
  Transmission Date: 20090719
  Serious: Yes (Hospitalization)
  Sender: FDA-Public Use
  Company Number: FR-2009-0474

PATIENT
  Age: 42 Year
  Sex: Female

DRUGS (2)
  1. NAVELBINE [Suspect]
     Dates: start: 20080724, end: 20080728
  2. FLUOROURACIL [Suspect]
     Dates: start: 20080724, end: 20080728

REACTIONS (3)
  - APHTHOUS STOMATITIS [None]
  - DIARRHOEA [None]
  - FEBRILE BONE MARROW APLASIA [None]
